FAERS Safety Report 7541629-1 (Version None)
Quarter: 2011Q2

REPORT INFORMATION
  Report Type: 
  Country: None (occurrence: None)
  Receive Date: 20110613
  Receipt Date: 20110601
  Transmission Date: 20111010
  Serious: Yes (Hospitalization)
  Sender: FDA-Public Use
  Company Number: GB-JNJFOC-20110508856

PATIENT
  Age: 57 Year
  Sex: Female

DRUGS (7)
  1. CITALOPRAM [Concomitant]
     Dates: start: 20070219
  2. LISINOPRIL [Concomitant]
     Dates: start: 20090810
  3. SIMVASTATIN [Concomitant]
     Dates: start: 20100823
  4. CO DYDRAMOL [Concomitant]
     Dates: start: 20100601
  5. SALAMOL EASI-BREATHE [Concomitant]
     Dates: start: 20110126
  6. OXYBUTYNIN [Concomitant]
     Dates: start: 20080926
  7. GOLIMUMAB [Suspect]
     Indication: RHEUMATOID ARTHRITIS
     Route: 058
     Dates: start: 20101019, end: 20110125

REACTIONS (5)
  - SALPINGO-OOPHORECTOMY BILATERAL [None]
  - HYSTERECTOMY [None]
  - ADNEXA UTERI MASS [None]
  - OMENTECTOMY [None]
  - VOMITING [None]
